FAERS Safety Report 10064700 (Version 1)
Quarter: 2014Q2

REPORT INFORMATION
  Report Type: Spontaneous
  Country: US (occurrence: None)
  Receive Date: 20140404
  Receipt Date: 20140404
  Transmission Date: 20141212
  Serious: Yes (Other)
  Sender: FDA-Public Use
  Company Number: CIO14022923

PATIENT
  Age: 16 Year
  Sex: Female

DRUGS (1)
  1. ZZZQUIL NIGHTIME SLEEP-AID [Suspect]
     Indication: INSOMNIA
     Dosage: FOR 2 MONTHS
     Dates: start: 201401, end: 201403

REACTIONS (3)
  - Loss of consciousness [None]
  - Dizziness [None]
  - Incorrect drug administration duration [None]
